FAERS Safety Report 9250981 (Version 1)
Quarter: 2013Q1

REPORT INFORMATION
  Report Type: Spontaneous
  Country: US (occurrence: None)
  Receive Date: 20130305
  Receipt Date: 20130305
  Transmission Date: 20140127
  Serious: Yes (Other)
  Sender: FDA-Public Use
  Company Number: 163-21880-12081684

PATIENT
  Age: 84 Year
  Sex: Female
  Weight: 43.5 kg

DRUGS (2)
  1. REVLIMID [Suspect]
     Indication: PLASMA CELL MYELOMA
     Dosage: 10MG, 21 IN 21 D, PO
     Route: 048
     Dates: start: 20120729, end: 20120809
  2. DECADRON (DEXAMETHASONE) [Concomitant]

REACTIONS (2)
  - Pancytopenia [None]
  - Platelet count decreased [None]
